FAERS Safety Report 18221757 (Version 1)
Quarter: 2020Q3

REPORT INFORMATION
  Report Type: Spontaneous
  Country: US (occurrence: US)
  Receive Date: 20200831
  Receipt Date: 20200831
  Transmission Date: 20201103
  Serious: Yes (Hospitalization)
  Sender: FDA-Public Use
  Company Number: None

PATIENT
  Age: 81 Year
  Sex: Male

DRUGS (1)
  1. LISINOPRIL (LISINOPRIL 40MG TAB) [Suspect]
     Active Substance: LISINOPRIL
     Indication: HYPERTENSION
     Route: 048
     Dates: start: 20150901, end: 20160414

REACTIONS (9)
  - Cough [None]
  - Sleep disorder [None]
  - Peripheral swelling [None]
  - Wheezing [None]
  - Asthma [None]
  - Chronic obstructive pulmonary disease [None]
  - Pulmonary congestion [None]
  - Productive cough [None]
  - Therapy interrupted [None]

NARRATIVE: CASE EVENT DATE: 20160412
